FAERS Safety Report 12663304 (Version 1)
Quarter: 2016Q3

REPORT INFORMATION
  Report Type: Spontaneous
  Country: DE (occurrence: DE)
  Receive Date: 20160818
  Receipt Date: 20160818
  Transmission Date: 20161109
  Serious: Yes (Hospitalization, Other)
  Sender: FDA-Public Use
  Company Number: DE-ABBVIE-16K-062-1698716-00

PATIENT
  Age: 52 Year
  Sex: Female

DRUGS (1)
  1. HUMIRA [Suspect]
     Active Substance: ADALIMUMAB
     Indication: HIDRADENITIS
     Route: 058
     Dates: start: 20150904, end: 201603

REACTIONS (12)
  - White blood cell count increased [Recovering/Resolving]
  - Platelet count increased [Recovering/Resolving]
  - Mean cell haemoglobin concentration decreased [Recovering/Resolving]
  - Haematocrit decreased [Recovering/Resolving]
  - Subcutaneous abscess [Unknown]
  - Mean cell volume decreased [Recovering/Resolving]
  - Blood iron decreased [Recovering/Resolving]
  - Vitamin B12 increased [Recovering/Resolving]
  - Red blood cell count decreased [Recovering/Resolving]
  - Haemoglobin decreased [Recovering/Resolving]
  - Mean cell haemoglobin decreased [Recovering/Resolving]
  - C-reactive protein increased [Recovering/Resolving]

NARRATIVE: CASE EVENT DATE: 201603
